FAERS Safety Report 5711004-0 (Version None)
Quarter: 2008Q2

REPORT INFORMATION
  Report Type: 
  Country: None (occurrence: None)
  Receive Date: 20080421
  Receipt Date: 20080416
  Transmission Date: 20081010
  Serious: Yes (Death, Hospitalization, Other)
  Sender: FDA-Public Use
  Company Number: IT-BAYER-200815047GPV

PATIENT
  Age: 72 Year
  Sex: Male
  Weight: 67 kg

DRUGS (10)
  1. SORAFENIB [Suspect]
     Indication: NON-SMALL CELL LUNG CANCER
     Dosage: TOTAL DAILY DOSE: 800 MG
     Route: 048
     Dates: start: 20080312, end: 20080401
  2. GEMCITABINE [Suspect]
     Indication: NON-SMALL CELL LUNG CANCER
     Route: 042
     Dates: start: 20080312, end: 20080312
  3. GEMCITABINE [Suspect]
     Route: 042
     Dates: start: 20080402
  4. CARDIO ASPIRINA [Concomitant]
     Indication: CARDIOVASCULAR EVENT PROPHYLAXIS
     Route: 065
     Dates: start: 20030101
  5. ESAPENT [Concomitant]
     Indication: HYPERTRIGLYCERIDAEMIA
     Route: 065
     Dates: start: 20030101
  6. VENITRIN [Concomitant]
     Indication: CARDIOVASCULAR EVENT PROPHYLAXIS
     Route: 065
     Dates: start: 20030101
  7. DILTIAZEM [Concomitant]
     Indication: HYPERTENSION
     Route: 065
     Dates: start: 20030101
  8. TORVAST [Concomitant]
     Indication: HYPERLIPIDAEMIA
     Route: 065
     Dates: start: 20030101
  9. CARVEDILOL [Concomitant]
     Indication: HYPERTENSION
     Route: 065
     Dates: start: 20030101
  10. TRIATEC [Concomitant]
     Indication: HYPERTENSION
     Route: 065
     Dates: start: 20030101

REACTIONS (4)
  - BRONCHIAL FISTULA [None]
  - HAEMOPTYSIS [None]
  - PULMONARY OEDEMA [None]
  - SUDDEN DEATH [None]
